FAERS Safety Report 24449656 (Version 1)
Quarter: 2024Q4

REPORT INFORMATION
  Report Type: Spontaneous
  Country: US (occurrence: None)
  Receive Date: 20241016
  Receipt Date: 20241016
  Transmission Date: 20250115
  Serious: Yes (Death)
  Sender: Public
  Company Number: None

PATIENT
  Age: 70 Year
  Sex: Female

DRUGS (1)
  1. CAPECITABINE [Suspect]
     Active Substance: CAPECITABINE
     Indication: Follicular lymphoma stage II
     Dosage: FREQUENCY : DAILY;?

REACTIONS (3)
  - Diarrhoea [None]
  - Malignant neoplasm progression [None]
  - Throat cancer [None]
